FAERS Safety Report 8536631-7 (Version None)
Quarter: 2012Q3

REPORT INFORMATION
  Report Type: 
  Country: None (occurrence: None)
  Receive Date: 20120725
  Receipt Date: 20120723
  Transmission Date: 20120928
  Serious: Yes (Other)
  Sender: FDA-Public Use
  Company Number: US-PFIZER INC-2012142822

PATIENT
  Sex: Female
  Weight: 68 kg

DRUGS (5)
  1. PROTONIX [Suspect]
     Indication: GASTROOESOPHAGEAL REFLUX DISEASE
     Dosage: 40 MG, 1X/DAY
     Route: 048
     Dates: start: 20120401, end: 20120501
  2. GLIMEPIRIDE [Concomitant]
     Dosage: UNK
  3. LYRICA [Concomitant]
     Dosage: UNK
  4. EXFORGE [Concomitant]
     Dosage: UNK
  5. METFORMIN [Concomitant]
     Dosage: UNK

REACTIONS (2)
  - MALAISE [None]
  - DIABETES MELLITUS [None]
